APPROVED DRUG PRODUCT: REMERON
Active Ingredient: MIRTAZAPINE
Strength: 30MG
Dosage Form/Route: TABLET;ORAL
Application: N020415 | Product #002 | TE Code: AB
Applicant: ORGANON USA LLC
Approved: Jun 14, 1996 | RLD: Yes | RS: No | Type: RX